FAERS Safety Report 9912104 (Version 2)
Quarter: 2014Q1

REPORT INFORMATION
  Report Type: Spontaneous
  Country: US (occurrence: US)
  Receive Date: 20140219
  Receipt Date: 20140219
  Transmission Date: 20141002
  Serious: Yes (Other)
  Sender: FDA-Public Use
  Company Number: US-BRISTOL-MYERS SQUIBB COMPANY-19174697

PATIENT
  Age: 47 Year
  Sex: Female

DRUGS (4)
  1. ABILIFY [Suspect]
     Indication: BIPOLAR I DISORDER
     Dosage: INT:AUG2013
     Route: 048
     Dates: start: 20061010
  2. SEROQUEL [Concomitant]
  3. LAMICTAL [Concomitant]
  4. KLONOPIN [Concomitant]

REACTIONS (1)
  - Movement disorder [Unknown]
